FAERS Safety Report 8178423-7 (Version None)
Quarter: 2012Q1

REPORT INFORMATION
  Report Type: 
  Country: None (occurrence: None)
  Receive Date: 20120301
  Receipt Date: 20120224
  Transmission Date: 20120608
  Serious: Yes (Hospitalization, Other)
  Sender: FDA-Public Use
  Company Number: US-ABBOTT-12P-163-0908870-00

PATIENT
  Sex: Female
  Weight: 54 kg

DRUGS (20)
  1. HUMIRA [Suspect]
     Indication: CROHN'S DISEASE
     Dates: start: 20110906, end: 20111204
  2. CALCIUM [Concomitant]
     Indication: PRODUCT USED FOR UNKNOWN INDICATION
     Route: 048
     Dates: start: 20111216, end: 20120105
  3. PREDNISONE TAB [Concomitant]
     Indication: CROHN'S DISEASE
     Dates: start: 20111205, end: 20111212
  4. PREDNISONE TAB [Concomitant]
     Dates: start: 20111221, end: 20111228
  5. MULTI-VITAMINS [Concomitant]
     Indication: PRODUCT USED FOR UNKNOWN INDICATION
     Route: 048
     Dates: start: 20110906, end: 20120201
  6. MORPHINE [Concomitant]
     Indication: CROHN'S DISEASE
     Route: 042
     Dates: start: 20111205, end: 20120107
  7. VITAMIN D [Concomitant]
     Indication: PRODUCT USED FOR UNKNOWN INDICATION
     Dates: start: 20120215, end: 20120215
  8. FLU VACCINE NOS [Concomitant]
     Indication: INFLUENZA
     Route: 050
     Dates: start: 20111101, end: 20111101
  9. MARIJUANA [Concomitant]
     Indication: PRODUCT USED FOR UNKNOWN INDICATION
     Route: 048
     Dates: start: 20120121, end: 20120121
  10. MULTI-VITAMINS [Concomitant]
     Dosage: 2-3 TIMES WEEKLY
     Route: 048
     Dates: start: 20120202
  11. CAFFEINE- SODA [Concomitant]
     Indication: PRODUCT USED FOR UNKNOWN INDICATION
     Route: 048
     Dates: start: 20110906, end: 20120221
  12. HUMIRA [Suspect]
     Dates: start: 20111205
  13. PREDNISONE TAB [Concomitant]
     Dates: start: 20111213, end: 20111220
  14. IRON [Concomitant]
     Indication: PRODUCT USED FOR UNKNOWN INDICATION
     Route: 048
     Dates: start: 20111215, end: 20120107
  15. IRON [Concomitant]
     Dosage: 3-4 TIMES WEEKLY
     Route: 048
     Dates: start: 20120108
  16. ULTRAM [Concomitant]
     Indication: CROHN'S DISEASE
     Route: 048
     Dates: start: 20120109, end: 20120130
  17. PREDNISONE TAB [Concomitant]
     Dates: start: 20111229
  18. LIQUOR [Concomitant]
     Indication: PRODUCT USED FOR UNKNOWN INDICATION
     Route: 048
     Dates: start: 20110920, end: 20110920
  19. TEA [Concomitant]
     Indication: PRODUCT USED FOR UNKNOWN INDICATION
     Route: 048
     Dates: start: 20110906, end: 20120221
  20. CAFFEINE CITRATE [Concomitant]
     Indication: PRODUCT USED FOR UNKNOWN INDICATION
     Route: 048
     Dates: start: 20110906, end: 20120221

REACTIONS (8)
  - DYSPEPSIA [None]
  - ANAEMIA [None]
  - INFLUENZA LIKE ILLNESS [None]
  - NAUSEA [None]
  - PYREXIA [None]
  - DEHYDRATION [None]
  - BACTERIAL INFECTION [None]
  - CROHN'S DISEASE [None]
